FAERS Safety Report 4780516-9 (Version None)
Quarter: 2005Q3

REPORT INFORMATION
  Report Type: 
  Country: None (occurrence: None)
  Receive Date: 20050926
  Receipt Date: 20050914
  Transmission Date: 20060218
  Serious: Yes (Hospitalization)
  Sender: FDA-Public Use
  Company Number: 190760

PATIENT
  Sex: Female
  Weight: 81.6475 kg

DRUGS (6)
  1. AVONEX [Suspect]
     Indication: MULTIPLE SCLEROSIS
     Dosage: 30 UG;QW; IM
     Route: 030
     Dates: start: 19960101, end: 20030801
  2. AVONEX [Suspect]
     Indication: MULTIPLE SCLEROSIS
     Dosage: 30 UG;QW; IM
     Route: 030
     Dates: start: 20030801, end: 20031201
  3. CELEBREX [Concomitant]
  4. VIOXX [Concomitant]
  5. DITROPAN [Concomitant]
  6. TYLENOL (CAPLET) [Concomitant]

REACTIONS (3)
  - DEPRESSION [None]
  - MIGRAINE [None]
  - NECK PAIN [None]
